FAERS Safety Report 17243908 (Version 1)
Quarter: 2020Q1

REPORT INFORMATION
  Report Type: Spontaneous
  Country: FR (occurrence: FR)
  Receive Date: 20200107
  Receipt Date: 20200107
  Transmission Date: 20200409
  Serious: Yes (Other)
  Sender: FDA-Public Use
  Company Number: FR-MYLANLABS-2020M1001419

PATIENT
  Age: 78 Year
  Sex: Male

DRUGS (1)
  1. ALLOPURINOL MYLAN 100 MG, COMPRIM? [Suspect]
     Active Substance: ALLOPURINOL
     Indication: HYPERURICAEMIA
     Dosage: 1 DOSAGE FORM, QD
     Route: 048
     Dates: start: 20190110, end: 20190118

REACTIONS (2)
  - Muscle spasms [Recovering/Resolving]
  - Rash [Recovering/Resolving]

NARRATIVE: CASE EVENT DATE: 20190117
